FAERS Safety Report 8026285-0 (Version None)
Quarter: 2012Q1

REPORT INFORMATION
  Report Type: 
  Country: None (occurrence: None)
  Receive Date: 20120105
  Receipt Date: 20111129
  Transmission Date: 20120608
  Serious: No
  Sender: FDA-Public Use
  Company Number: US-ABBOTT-11P-163-0879489-00

PATIENT
  Sex: Female
  Weight: 102.15 kg

DRUGS (4)
  1. ALBUTEROL [Concomitant]
     Indication: ASTHMA EXERCISE INDUCED
  2. ADVAIR DISKUS 100/50 [Concomitant]
     Indication: ASTHMA EXERCISE INDUCED
  3. THYROID TAB [Concomitant]
     Indication: HYPOTHYROIDISM
  4. SYNTHROID [Suspect]
     Indication: HYPOTHYROIDISM
     Dates: start: 20111101, end: 20111129

REACTIONS (8)
  - HYPERSENSITIVITY [None]
  - EYE SWELLING [None]
  - ASTHMA [None]
  - UPPER-AIRWAY COUGH SYNDROME [None]
  - OROPHARYNGEAL PAIN [None]
  - HEADACHE [None]
  - COUGH [None]
  - CHEST DISCOMFORT [None]
